FAERS Safety Report 6532821-3 (Version None)
Quarter: 2010Q1

REPORT INFORMATION
  Report Type: 
  Country: None (occurrence: None)
  Receive Date: 20100111
  Receipt Date: 20091223
  Transmission Date: 20100710
  Serious: Yes (Other)
  Sender: FDA-Public Use
  Company Number: PHHY2009NZ58535

PATIENT
  Age: 36 Year
  Sex: Female

DRUGS (1)
  1. GLEEVEC [Suspect]
     Indication: GASTROINTESTINAL CARCINOMA

REACTIONS (4)
  - MUSCLE ATROPHY [None]
  - PAIN [None]
  - TOOTH DISORDER [None]
  - WEIGHT DECREASED [None]
